FAERS Safety Report 8536952-8 (Version None)
Quarter: 2012Q3

REPORT INFORMATION
  Report Type: 
  Country: None (occurrence: None)
  Receive Date: 20120718
  Receipt Date: 20120718
  Transmission Date: 20120928
  Serious: Yes (Hospitalization)
  Sender: FDA-Public Use
  Company Number: None

PATIENT
  Age: 82 Year
  Sex: Male
  Weight: 102.7 kg

DRUGS (1)
  1. ATENOLOL [Suspect]
     Indication: ATRIAL FLUTTER
     Dosage: 12.5 MG EVERY DAY PO
     Route: 048
     Dates: start: 20110919, end: 20120607

REACTIONS (1)
  - BRADYCARDIA [None]
